FAERS Safety Report 22336885 (Version 2)
Quarter: 2023Q2

REPORT INFORMATION
  Report Type: Other
  Country: AE (occurrence: None)
  Receive Date: 20230518
  Receipt Date: 20230531
  Transmission Date: 20230722
  Serious: Yes (Hospitalization)
  Sender: FDA-Public Use
  Company Number: AE-ROCHE-3325536

PATIENT
  Age: 52 Year
  Sex: Female

DRUGS (3)
  1. HERCEPTIN [Suspect]
     Active Substance: TRASTUZUMAB
     Indication: Breast cancer metastatic
     Route: 058
     Dates: start: 20221215
  2. PERJETA [Suspect]
     Active Substance: PERTUZUMAB
     Indication: Breast cancer metastatic
     Route: 042
     Dates: start: 20221215
  3. TAXOL [Concomitant]
     Active Substance: PACLITAXEL

REACTIONS (1)
  - Mycobacterium tuberculosis complex test positive [Recovered/Resolved]

NARRATIVE: CASE EVENT DATE: 20230329
